FAERS Safety Report 9338192 (Version 1)
Quarter: 2013Q2

REPORT INFORMATION
  Report Type: Spontaneous
  Country: US (occurrence: None)
  Receive Date: 20130605
  Receipt Date: 20130605
  Transmission Date: 20140414
  Serious: Yes (Other)
  Sender: FDA-Public Use
  Company Number: None

PATIENT
  Age: 68 Year
  Sex: Female
  Weight: 93.44 kg

DRUGS (1)
  1. CLOPIDOGREL 75 MG [Suspect]
     Route: 048

REACTIONS (3)
  - Vomiting [None]
  - Malaise [None]
  - Product substitution issue [None]
